FAERS Safety Report 7339080 (Version 3)
Quarter: 2020Q3

REPORT INFORMATION
  Report Type: Report from Study
  Country: US (occurrence: US)
  Receive Date: 20100331
  Receipt Date: 20100512
  Transmission Date: 20201105
  Serious: Yes (Death)
  Sender: FDA-Public Use
  Company Number: US-ROCHE-694036

PATIENT

DRUGS (1)
  1. IBANDRONIC ACID. [Suspect]
     Active Substance: IBANDRONIC ACID
     Dosage: LAST DOSE OF MEDICATION TAKEN IN MAY 2008
     Route: 065
     Dates: start: 200705, end: 200805

REACTIONS (1)
  - Abdominal strangulated hernia [Fatal]
